FAERS Safety Report 17843744 (Version 6)
Quarter: 2022Q3

REPORT INFORMATION
  Report Type: Report from Study
  Country: US (occurrence: US)
  Receive Date: 20200531
  Receipt Date: 20220824
  Transmission Date: 20221026
  Serious: Yes (Other)
  Sender: FDA-Public Use
  Company Number: US-BIOGEN-2020BI00879184

PATIENT
  Sex: Female

DRUGS (1)
  1. TYSABRI [Suspect]
     Active Substance: NATALIZUMAB
     Indication: Multiple sclerosis
     Dosage: INFUSED OVER 1 HOUR
     Route: 050
     Dates: start: 20141028

REACTIONS (7)
  - Mycobacterium avium complex infection [Not Recovered/Not Resolved]
  - Lower respiratory tract infection viral [Not Recovered/Not Resolved]
  - Lung disorder [Not Recovered/Not Resolved]
  - Pneumonitis [Not Recovered/Not Resolved]
  - Decreased immune responsiveness [Unknown]
  - Haemoptysis [Unknown]
  - Multiple sclerosis [Unknown]

NARRATIVE: CASE EVENT DATE: 20180101
